FAERS Safety Report 9010437 (Version 2)
Quarter: 2013Q1

REPORT INFORMATION
  Report Type: Report from Study
  Country: US (occurrence: US)
  Receive Date: 20130109
  Receipt Date: 20130116
  Transmission Date: 20140127
  Serious: Yes (Other)
  Sender: FDA-Public Use
  Company Number: US-ROCHE-1177039

PATIENT
  Age: 56 Year
  Sex: Male
  Weight: 88.98 kg

DRUGS (1)
  1. NUTROPIN [Suspect]
     Indication: PRODUCT USED FOR UNKNOWN INDICATION
     Dosage: NUSPIN 5
     Route: 058
     Dates: start: 20100101

REACTIONS (1)
  - Bladder cancer [Not Recovered/Not Resolved]
